FAERS Safety Report 18823113 (Version 1)
Quarter: 2021Q1

REPORT INFORMATION
  Report Type: Spontaneous
  Country: FR (occurrence: FR)
  Receive Date: 20210202
  Receipt Date: 20210202
  Transmission Date: 20210419
  Serious: Yes (Life-Threatening, Hospitalization)
  Sender: FDA-Public Use
  Company Number: FR-BAYER-2021-048270

PATIENT
  Age: 61 Year
  Sex: Male
  Weight: 81 kg

DRUGS (23)
  1. CIFLOX [Suspect]
     Active Substance: CIPROFLOXACIN
     Indication: FEBRILE INFECTION
     Dosage: UNK
     Route: 048
     Dates: start: 20201029, end: 20201104
  2. MORPHINE [Concomitant]
     Active Substance: MORPHINE
  3. KEPPRA [Concomitant]
     Active Substance: LEVETIRACETAM
  4. ZOPHREN [ONDANSETRON HYDROCHLORIDE] [Concomitant]
     Active Substance: ONDANSETRON
  5. PERFALGAN [Concomitant]
     Active Substance: ACETAMINOPHEN
  6. BIPRETERAX [INDAPAMIDE;PERINDOPRIL ERBUMINE] [Suspect]
     Active Substance: INDAPAMIDE\PERINDOPRIL ERBUMINE
     Indication: HYPERTENSION
     Route: 048
     Dates: start: 20201103, end: 20201106
  7. VANCOMYCINE MYLAN [VANCOMYCIN] [Concomitant]
     Active Substance: VANCOMYCIN
  8. PLITICAN [Concomitant]
     Active Substance: ALIZAPRIDE HYDROCHLORIDE
  9. AUGMENTIN [Suspect]
     Active Substance: AMOXICILLIN\CLAVULANATE POTASSIUM
     Indication: FEBRILE INFECTION
     Dosage: INCONNUE
     Route: 048
     Dates: start: 20201029, end: 20201104
  10. SANDOSTATINE [Concomitant]
     Active Substance: OCTREOTIDE ACETATE
  11. HYPNOVEL [MIDAZOLAM HYDROCHLORIDE] [Concomitant]
     Active Substance: MIDAZOLAM HYDROCHLORIDE
  12. SOLU?MEDROL [Concomitant]
     Active Substance: METHYLPREDNISOLONE SODIUM SUCCINATE
  13. DIFFU K [Suspect]
     Active Substance: POTASSIUM CHLORIDE
     Indication: HYPOKALAEMIA
     Route: 048
     Dates: start: 20201103, end: 20201105
  14. LOVENOX [Concomitant]
     Active Substance: ENOXAPARIN SODIUM
  15. LANSOPRAZOLE. [Suspect]
     Active Substance: LANSOPRAZOLE
     Indication: PROPHYLAXIS AGAINST GASTROINTESTINAL ULCER
     Route: 048
     Dates: start: 20201103, end: 20201105
  16. ACUPAN [Concomitant]
     Active Substance: NEFOPAM HYDROCHLORIDE
  17. LOXEN [NICARDIPINE HYDROCHLORIDE] [Suspect]
     Active Substance: NICARDIPINE HYDROCHLORIDE
  18. HALDOL [Concomitant]
     Active Substance: HALOPERIDOL
  19. KEYTRUDA [Suspect]
     Active Substance: PEMBROLIZUMAB
     Indication: TRANSITIONAL CELL CARCINOMA
     Route: 042
     Dates: start: 20200609, end: 20201013
  20. VOGALENE [Concomitant]
     Active Substance: METOPIMAZINE
  21. GENTAMICINE [GENTAMICIN] [Concomitant]
     Active Substance: GENTAMICIN
  22. PANTOPRAZOLE [Concomitant]
     Active Substance: PANTOPRAZOLE
  23. TRAMADOL HCL [Concomitant]
     Active Substance: TRAMADOL HYDROCHLORIDE

REACTIONS (1)
  - Pancreatitis acute [Recovered/Resolved]

NARRATIVE: CASE EVENT DATE: 20201104
